FAERS Safety Report 4433794-X (Version None)
Quarter: 2004Q3

REPORT INFORMATION
  Report Type: 
  Country: None (occurrence: None)
  Receive Date: 20040825
  Receipt Date: 20040519
  Transmission Date: 20050211
  Serious: Yes (Hospitalization)
  Sender: FDA-Public Use
  Company Number: F01200401189

PATIENT
  Age: 75 Year
  Sex: Male

DRUGS (6)
  1. (OXALIPLATIN) - SOLUTION - 85 MG/M2 [Suspect]
     Indication: COLORECTAL CANCER
     Dosage: 85 MG/M2, Q2W, INTRAVENOUS NOS
     Route: 042
     Dates: start: 20040504, end: 20040504
  2. FLUOROURACIL [Suspect]
     Dosage: 500 MG/M2 BOLUS ON D1, D8 AND D15, Q4W, INTRAVENOUS NOS
     Route: 042
     Dates: start: 20040504, end: 20040504
  3. LEUCOVORIN CALCIUM [Suspect]
     Dosage: 20 MG/M2 ON D1, D8 AND D15, Q42, INTRAVENOUS NOS
     Route: 042
     Dates: start: 20040504, end: 20040504
  4. AVASTIN [Suspect]
     Dosage: 5 MG/KG OVER 30-90 MINUTES IV INFUSION ON DAY 1, 15, Q4W, INTRAVENOUS NOS
     Route: 042
     Dates: start: 20040504, end: 20040504
  5. LESCOL [Concomitant]
  6. LOTREL (AMLODIPINE/BENAZEPRIL HCL) [Concomitant]

REACTIONS (6)
  - HYPERCREATININAEMIA [None]
  - HYPERGLYCAEMIA [None]
  - HYPOALBUMINAEMIA [None]
  - HYPOKALAEMIA [None]
  - HYPONATRAEMIA [None]
  - NEUTROPENIA [None]
